FAERS Safety Report 8761116 (Version 7)
Quarter: 2014Q2

REPORT INFORMATION
  Report Type: Spontaneous
  Country: US (occurrence: US)
  Receive Date: 20120830
  Receipt Date: 20140523
  Transmission Date: 20141212
  Serious: Yes (Hospitalization, Other)
  Sender: FDA-Public Use
  Company Number: US-009507513-1206USA04378

PATIENT
  Sex: Female

DRUGS (2)
  1. FOSAMAX [Suspect]
     Indication: OSTEOPOROSIS
     Dosage: UNK
     Route: 048
     Dates: start: 20030321, end: 20030915
  2. ACTONEL [Suspect]
     Indication: OSTEOPOROSIS
     Dosage: UNK
     Dates: start: 20040209, end: 20051122

REACTIONS (41)
  - Femur fracture [Recovered/Resolved]
  - Open reduction of fracture [Unknown]
  - Hip arthroplasty [Unknown]
  - Open reduction of fracture [Unknown]
  - Cochlea implant [Unknown]
  - Bone graft [Unknown]
  - Myocardial infarction [Unknown]
  - Open reduction of fracture [Not Recovered/Not Resolved]
  - Knee arthroplasty [Unknown]
  - Surgery [Unknown]
  - Deafness unilateral [Unknown]
  - Hip arthroplasty [Unknown]
  - Aortic disorder [Unknown]
  - Psoriatic arthropathy [Unknown]
  - Cardiac failure congestive [Unknown]
  - Venous thrombosis [Unknown]
  - Muscular weakness [Unknown]
  - Dehydration [Unknown]
  - Atypical pneumonia [Unknown]
  - Wound infection staphylococcal [Recovered/Resolved]
  - Transfusion [Unknown]
  - Influenza [Unknown]
  - Fall [Unknown]
  - Head injury [Unknown]
  - Haemorrhoids [Unknown]
  - Psoriasis [Unknown]
  - Myositis ossificans [Unknown]
  - Osteoarthritis [Unknown]
  - Asthma [Unknown]
  - Sleep disorder [Unknown]
  - Device failure [Unknown]
  - Fracture nonunion [Unknown]
  - Device failure [Unknown]
  - Device breakage [Unknown]
  - Ecchymosis [Unknown]
  - Medical device removal [Unknown]
  - Synovial disorder [Unknown]
  - Extraskeletal ossification [Unknown]
  - Bone operation [Unknown]
  - Nausea [Unknown]
  - Vomiting [Unknown]
